FAERS Safety Report 4737805-3 (Version None)
Quarter: 2005Q3

REPORT INFORMATION
  Report Type: 
  Country: None (occurrence: None)
  Receive Date: 20050805
  Receipt Date: 20050723
  Transmission Date: 20060218
  Serious: Yes (Death, Hospitalization, Other)
  Sender: FDA-Public Use
  Company Number: 2005078922

PATIENT
  Age: 56 Year
  Sex: Female
  Weight: 74.8435 kg

DRUGS (14)
  1. CELEBREX [Suspect]
     Indication: OSTEOARTHRITIS
     Dosage: ORAL
     Route: 048
     Dates: end: 20050127
  2. LIPITOR [Suspect]
     Indication: ILL-DEFINED DISORDER
     Dates: end: 20041111
  3. FOSAMAX [Suspect]
     Indication: ILL-DEFINED DISORDER
  4. ACETYLSALICYLIC ACID SRT [Suspect]
     Indication: ILL-DEFINED DISORDER
     Dates: end: 20041111
  5. VITAMIN D [Suspect]
     Indication: ILL-DEFINED DISORDER
  6. OXYCODONE HCL [Suspect]
     Indication: ANALGESIC EFFECT
     Dates: end: 20041127
  7. MULTIVITAMIN [Concomitant]
  8. DYAZIDE [Concomitant]
  9. HYDROCHLOROTHIAZIDE [Concomitant]
  10. CALCIUM (CALCIUM) [Concomitant]
  11. POTASSIUM CHLORIDE [Concomitant]
  12. COLACE (DOCUSATE SODIUM) [Concomitant]
  13. NEXIUM [Concomitant]
  14. ALL OTHER THERAPEUTIC PRODUCTS [Concomitant]

REACTIONS (33)
  - ASTHENIA [None]
  - BLOOD PRESSURE DECREASED [None]
  - BODY HEIGHT DECREASED [None]
  - CHRONIC OBSTRUCTIVE PULMONARY DISEASE [None]
  - CUTANEOUS LUPUS ERYTHEMATOSUS [None]
  - DRUG HYPERSENSITIVITY [None]
  - DYSPHAGIA [None]
  - GASTROOESOPHAGEAL REFLUX DISEASE [None]
  - HAEMORRHAGE [None]
  - HYPERTENSION [None]
  - HYPOKALAEMIA [None]
  - LYMPH NODE CANCER METASTATIC [None]
  - LYMPHADENOPATHY [None]
  - METASTASES TO LIVER [None]
  - METASTASES TO PERITONEUM [None]
  - METASTASES TO THORAX [None]
  - METASTATIC GASTRIC CANCER [None]
  - NAUSEA [None]
  - OESOPHAGEAL CARCINOMA [None]
  - OESOPHAGEAL ULCER [None]
  - ORAL INTAKE REDUCED [None]
  - PAIN [None]
  - PERFORMANCE STATUS DECREASED [None]
  - PLEURAL EFFUSION [None]
  - PNEUMONIA [None]
  - PURULENT DISCHARGE [None]
  - SPLENIC HAEMATOMA [None]
  - TOOTH LOSS [None]
  - URINARY TRACT INFECTION [None]
  - VOMITING [None]
  - WEIGHT DECREASED [None]
  - WOUND INFECTION [None]
  - WOUND SECRETION [None]
